FAERS Safety Report 25705528 (Version 1)
Quarter: 2025Q3

REPORT INFORMATION
  Report Type: Spontaneous
  Country: CA (occurrence: CA)
  Receive Date: 20250820
  Receipt Date: 20250820
  Transmission Date: 20251021
  Serious: Yes (Other)
  Sender: GILEAD
  Company Number: CA-GILEAD-2025-0722652

PATIENT
  Sex: Female

DRUGS (1)
  1. TRODELVY [Suspect]
     Active Substance: SACITUZUMAB GOVITECAN-HZIY
     Indication: Product used for unknown indication
     Route: 065

REACTIONS (8)
  - Hepatic failure [Unknown]
  - Decreased appetite [Unknown]
  - Thirst decreased [Unknown]
  - Night sweats [Unknown]
  - Flushing [Unknown]
  - Abdominal distension [Unknown]
  - Dyspnoea [Unknown]
  - Fatigue [Unknown]
